FAERS Safety Report 5059552-3 (Version None)
Quarter: 2006Q3

REPORT INFORMATION
  Report Type: 
  Country: None (occurrence: None)
  Receive Date: 20060724
  Receipt Date: 20060718
  Transmission Date: 20061208
  Serious: Yes (Hospitalization, Other)
  Sender: FDA-Public Use
  Company Number: PHEH2006US09212

PATIENT
  Age: 77 Year
  Sex: Female

DRUGS (3)
  1. DIOVAN [Suspect]
     Indication: HYPERTENSION
     Route: 048
     Dates: start: 20030101, end: 20060717
  2. COREG [Concomitant]
  3. LASIX [Concomitant]

REACTIONS (4)
  - ANGIONEUROTIC OEDEMA [None]
  - BREAST TENDERNESS [None]
  - PRURITUS [None]
  - URTICARIA [None]
